FAERS Safety Report 6603683-0 (Version None)
Quarter: 2010Q1

REPORT INFORMATION
  Report Type: 
  Country: None (occurrence: None)
  Receive Date: 20100226
  Receipt Date: 20100216
  Transmission Date: 20100710
  Serious: Yes (Disabling, Congenital Anomaly)
  Sender: FDA-Public Use
  Company Number: FR-ABBOTT-10P-056-0626581-00

PATIENT
  Sex: Female

DRUGS (1)
  1. DEPAKENE [Suspect]
     Indication: DRUG EXPOSURE DURING PREGNANCY
     Route: 064

REACTIONS (7)
  - CONGENITAL ANOMALY [None]
  - CONVULSION [None]
  - DRUG EXPOSURE DURING PREGNANCY [None]
  - DRUG EXPOSURE VIA BREAST MILK [None]
  - DRUG WITHDRAWAL SYNDROME NEONATAL [None]
  - HYPERMOBILITY SYNDROME [None]
  - PSYCHOMOTOR RETARDATION [None]
